FAERS Safety Report 19711286 (Version 1)
Quarter: 2021Q3

REPORT INFORMATION
  Report Type: Spontaneous
  Country: US (occurrence: US)
  Receive Date: 20210816
  Receipt Date: 20210816
  Transmission Date: 20211014
  Serious: Yes (Hospitalization, Other)
  Sender: FDA-Public Use
  Company Number: US-MYLANLABS-2021M1050321

PATIENT
  Age: 14 Year
  Sex: Female

DRUGS (11)
  1. CLONIDINE. [Interacting]
     Active Substance: CLONIDINE
     Indication: AUTISM SPECTRUM DISORDER
     Dosage: 0.2 MILLIGRAM, QDAT BED TIME
     Route: 065
  2. CLONIDINE. [Interacting]
     Active Substance: CLONIDINE
     Indication: ATTENTION DEFICIT HYPERACTIVITY DISORDER
  3. TOPIRAMATE. [Interacting]
     Active Substance: TOPIRAMATE
     Indication: ATTENTION DEFICIT HYPERACTIVITY DISORDER
  4. TOPIRAMATE. [Interacting]
     Active Substance: TOPIRAMATE
     Indication: AUTISM SPECTRUM DISORDER
     Dosage: 150 MILLIGRAM, QD AT BED TIME
     Route: 065
  5. LORAZEPAM. [Suspect]
     Active Substance: LORAZEPAM
     Indication: SEROTONIN SYNDROME
     Dosage: 7.5 MILLIGRAM OVER 24 HOURS
     Route: 065
  6. HALOPERIDOL. [Suspect]
     Active Substance: HALOPERIDOL
     Indication: ATTENTION DEFICIT HYPERACTIVITY DISORDER
  7. AMANTADINE. [Interacting]
     Active Substance: AMANTADINE HYDROCHLORIDE
     Indication: ATTENTION DEFICIT HYPERACTIVITY DISORDER
  8. HALOPERIDOL. [Suspect]
     Active Substance: HALOPERIDOL
     Indication: AUTISM SPECTRUM DISORDER
     Route: 065
  9. BUPROPION. [Suspect]
     Active Substance: BUPROPION
     Indication: AUTISM SPECTRUM DISORDER
     Dosage: 150 MILLIGRAM, QD 2 WEEKS BEFORE HER HOSPITALISATION
     Route: 065
  10. BUPROPION. [Interacting]
     Active Substance: BUPROPION
     Indication: ATTENTION DEFICIT HYPERACTIVITY DISORDER
  11. AMANTADINE. [Interacting]
     Active Substance: AMANTADINE HYDROCHLORIDE
     Indication: AUTISM SPECTRUM DISORDER
     Dosage: 100 MILLIGRAMFOR AT LEAST 6 MONTHS
     Route: 065

REACTIONS (7)
  - Drug interaction [Recovered/Resolved]
  - Paradoxical drug reaction [Recovered/Resolved]
  - Agitation [Recovered/Resolved]
  - Off label use [Recovered/Resolved]
  - Neurotoxicity [Recovered/Resolved]
  - Psychiatric symptom [Recovered/Resolved]
  - Dystonia [Recovered/Resolved]
